FAERS Safety Report 9030428 (Version 1)
Quarter: 2013Q1

REPORT INFORMATION
  Report Type: Report from Study
  Country: GB (occurrence: GB)
  Receive Date: 20130122
  Receipt Date: 20130122
  Transmission Date: 20140127
  Serious: Yes (Other)
  Sender: FDA-Public Use
  Company Number: GB-AMGEN-GBRCT2013003682

PATIENT
  Age: 74 Year
  Sex: Female
  Weight: 68 kg

DRUGS (15)
  1. ETANERCEPT [Suspect]
     Indication: RHEUMATOID ARTHRITIS
     Dosage: 50 MG, QWK
     Route: 058
     Dates: start: 20120522
  2. NICORANDIL [Concomitant]
     Indication: MYOCARDIAL ISCHAEMIA
     Dosage: 10 MG, 1X/DAY
     Route: 048
     Dates: start: 19991201
  3. ACETYLSALICYLIC ACID ENTERIC COATED [Concomitant]
     Indication: ANGINA PECTORIS
     Dosage: 75 MG, 1X/DAY
     Route: 048
     Dates: start: 199912
  4. METHOTREXATE SODIUM [Concomitant]
     Dosage: 17.5 MG, WEEKLY
     Route: 048
     Dates: start: 20061017
  5. FOLIC ACID [Concomitant]
     Dosage: 5 MG, UNK
     Route: 048
     Dates: start: 20061017
  6. ATORVASTATIN CALCIUM [Concomitant]
     Indication: HYPERLIPIDAEMIA
     Dosage: 40 ML, 1X/DAY
     Route: 048
     Dates: start: 20010123
  7. CALCICHEW-D3 [Concomitant]
     Dosage: 2 DF, 1X/DAY
     Route: 048
     Dates: start: 19991228
  8. MEPYRAMINE MALEATE [Concomitant]
     Dosage: UNK UNK, BID
     Route: 061
     Dates: start: 20120611
  9. MOMETASONE FUROATE [Concomitant]
     Indication: RHINITIS
     Dosage: 50 MUG, UNK
     Route: 045
  10. CLENIL                             /00212602/ [Concomitant]
     Dosage: 100 MUG, BID
  11. AMOXYCILLIN                        /00249601/ [Concomitant]
     Indication: UPPER RESPIRATORY TRACT INFECTION
     Dosage: 250 MG, 3X/DAY
     Route: 048
     Dates: start: 20120627, end: 20120703
  12. AMOXYCILLIN                        /00249601/ [Concomitant]
     Dosage: 500 MG, 2X/DAY
     Route: 048
     Dates: start: 20120703, end: 20120709
  13. PREDNISOLONE [Concomitant]
     Indication: UPPER RESPIRATORY TRACT INFECTION
     Dosage: 20 MG, 3X/DAY
     Route: 048
     Dates: start: 20120703, end: 20120705
  14. PREDNISOLONE [Concomitant]
     Dosage: 15 MG, 1X/DAY
     Route: 048
     Dates: start: 20121127
  15. AMOXICILLIN\CLAVULANATE POTASSIUM [Concomitant]
     Dosage: UNK UNK, UNK

REACTIONS (1)
  - Interstitial lung disease [Not Recovered/Not Resolved]
